FAERS Safety Report 8919999 (Version 1)
Quarter: 2012Q4

REPORT INFORMATION
  Report Type: 
  Country: CH (occurrence: CH)
  Receive Date: 20121121
  Receipt Date: 20121121
  Transmission Date: 20130627
  Serious: Yes (Hospitalization)
  Sender: FDA-Public Use
  Company Number: CH-009507513-1211CHE006588

PATIENT
  Age: 69 Year
  Sex: Male

DRUGS (16)
  1. INVANZ [Suspect]
     Indication: PNEUMONIA BACTERIAL
     Dosage: 1 g, bid
     Route: 042
     Dates: start: 20121001, end: 20121002
  2. TAVANIC [Suspect]
     Indication: PNEUMONIA BACTERIAL
     Dosage: 500 mg, qod
     Route: 048
     Dates: start: 20121003, end: 20121005
  3. AUGMENTIN [Suspect]
     Indication: PNEUMONIA BACTERIAL
     Dosage: 1200 mg, qd
     Route: 042
     Dates: start: 20121005, end: 20121009
  4. VANCOMYCIN [Suspect]
     Indication: PNEUMONIA BACTERIAL
     Dosage: 1 g, Once
     Route: 042
     Dates: start: 20121001, end: 20121001
  5. INSULATARD (INSULIN HUMAN, ISOPHANE) [Concomitant]
     Indication: TYPE 1 DIABETES MELLITUS
     Dosage: 10 IU, q12h
     Route: 058
  6. NOVORAPID [Concomitant]
     Indication: TYPE 1 DIABETES MELLITUS
     Dosage: long term
     Route: 058
  7. ASPIRIN CARDIO [Concomitant]
     Dosage: 100 mg, qd
     Route: 048
  8. ATACAND PLUS [Concomitant]
     Dosage: 32 mg, qd
     Route: 048
  9. DILATREND [Concomitant]
     Dosage: 12.5 mg, q12h
  10. ADALAT CR [Concomitant]
     Dosage: 60 mg, qd
  11. TOREM [Concomitant]
     Dosage: 200 mg, qd
  12. CALCIUM ACETATE [Concomitant]
     Dosage: 500 mg, q8h
  13. RENAGEL [Concomitant]
     Dosage: 800 mg, q8h
  14. PURSANA [Concomitant]
     Dosage: 30 ml, qd
  15. VI-DE-3-HYDROSOL [Concomitant]
     Dosage: 400 IU, qd
  16. DAFALGAN [Concomitant]
     Dosage: 1000 mg, tid

REACTIONS (4)
  - Muscle contractions involuntary [Recovered/Resolved]
  - Confusional state [Recovered/Resolved]
  - Hallucination [Recovered/Resolved]
  - Delirium [Recovered/Resolved]
